FAERS Safety Report 20735895 (Version 3)
Quarter: 2022Q2

REPORT INFORMATION
  Report Type: Spontaneous
  Country: US (occurrence: US)
  Receive Date: 20220421
  Receipt Date: 20220520
  Transmission Date: 20220721
  Serious: Yes (Hospitalization)
  Sender: FDA-Public Use
  Company Number: US-VERTEX PHARMACEUTICALS-2022-006023

PATIENT
  Sex: Female

DRUGS (12)
  1. TRIKAFTA [Suspect]
     Active Substance: ELEXACAFTOR\IVACAFTOR\TEZACAFTOR
     Indication: Cystic fibrosis
     Dosage: UNK FREQ
     Route: 048
     Dates: end: 20220412
  2. PRILOSEC [Concomitant]
     Active Substance: OMEPRAZOLE MAGNESIUM
  3. CLARITIN REDITABS [Concomitant]
     Active Substance: LORATADINE
  4. DULERA [Concomitant]
     Active Substance: FORMOTEROL FUMARATE DIHYDRATE\MOMETASONE FUROATE
  5. CREON [Concomitant]
     Active Substance: PANCRELIPASE AMYLASE\PANCRELIPASE LIPASE\PANCRELIPASE PROTEASE
  6. FLONASE ALLERGY RELIEF [Concomitant]
     Active Substance: FLUTICASONE PROPIONATE
  7. FORTAZ [Concomitant]
     Active Substance: CEFTAZIDIME SODIUM
  8. PULMOZYME [Concomitant]
     Active Substance: DORNASE ALFA
  9. PROVENTIL [Concomitant]
     Active Substance: ALBUTEROL
  10. AZITHROMYCIN [Concomitant]
     Active Substance: AZITHROMYCIN
  11. SODIUM CHLORIDE [Concomitant]
     Active Substance: SODIUM CHLORIDE
  12. CEFTAZIDIME [Concomitant]
     Active Substance: CEFTAZIDIME

REACTIONS (2)
  - Cystic fibrosis [Unknown]
  - Bronchopulmonary aspergillosis allergic [Unknown]
